FAERS Safety Report 8141337-2 (Version None)
Quarter: 2012Q1

REPORT INFORMATION
  Report Type: 
  Country: None (occurrence: None)
  Receive Date: 20120216
  Receipt Date: 20120202
  Transmission Date: 20120608
  Serious: Yes (Hospitalization)
  Sender: FDA-Public Use
  Company Number: JP-ROCHE-1038363

PATIENT
  Sex: Female

DRUGS (14)
  1. MUCOSTA [Concomitant]
     Indication: GASTRITIS
     Route: 048
  2. ALENDRONATE SODIUM [Concomitant]
     Indication: OSTEOPOROSIS
     Route: 048
  3. VOLTAREN-XR [Concomitant]
     Indication: RHEUMATOID ARTHRITIS
     Route: 048
     Dates: end: 20080821
  4. MAGNESIUM OXIDE [Concomitant]
     Indication: CONSTIPATION
     Route: 048
     Dates: start: 20080723, end: 20080916
  5. ETODOLAC [Concomitant]
     Indication: RHEUMATOID ARTHRITIS
     Route: 048
     Dates: start: 20080822, end: 20091110
  6. ACTEMRA [Suspect]
     Dosage: 336MG-352MG
     Route: 041
     Dates: start: 20090622, end: 20090824
  7. ACTEMRA [Suspect]
     Dosage: 344MG-360MG
     Route: 041
     Dates: start: 20091009, end: 20100510
  8. PROGRAF [Concomitant]
     Indication: RHEUMATOID ARTHRITIS
     Route: 048
     Dates: end: 20080821
  9. CYTOTEC [Concomitant]
     Indication: GASTRIC ULCER
     Route: 048
     Dates: end: 20091110
  10. FAMOTIDINE [Concomitant]
     Indication: GASTRITIS
     Route: 048
  11. ONEALFA [Concomitant]
     Indication: OSTEOPOROSIS
     Route: 048
  12. FERROUS CITRATE [Concomitant]
     Indication: IRON DEFICIENCY ANAEMIA
     Route: 048
     Dates: end: 20091110
  13. ACTEMRA [Suspect]
     Indication: RHEUMATOID ARTHRITIS
     Route: 041
     Dates: start: 20080528, end: 20090520
  14. ISONIAZID [Concomitant]
     Indication: ANTIBIOTIC PROPHYLAXIS
     Route: 048
     Dates: start: 20080528, end: 20081125

REACTIONS (1)
  - AUTOIMMUNE HEPATITIS [None]
